FAERS Safety Report 6100383-0 (Version None)
Quarter: 2009Q1

REPORT INFORMATION
  Report Type: 
  Country: None (occurrence: None)
  Receive Date: 20090303
  Receipt Date: 20090219
  Transmission Date: 20090719
  Serious: Yes (Death, Life-Threatening, Hospitalization, Other)
  Sender: FDA-Public Use
  Company Number: JP-PFIZER INC-2009166472

PATIENT

DRUGS (8)
  1. VFEND [Suspect]
     Indication: FUNGAL INFECTION
     Dosage: 200 MG, 2X/DAY
     Route: 042
     Dates: start: 20090120, end: 20090207
  2. VFEND [Suspect]
     Indication: ASPERGILLOSIS
  3. VFEND [Suspect]
     Dosage: 200 MG, 2X/DAY
     Route: 048
     Dates: start: 20090127, end: 20090202
  4. MICARDIS [Concomitant]
     Route: 048
  5. CALCIUM CARBONATE [Concomitant]
     Route: 048
  6. LASIX [Concomitant]
     Route: 048
  7. PARIET [Concomitant]
     Route: 048
  8. LASIX [Concomitant]
     Dates: start: 20090123, end: 20090202

REACTIONS (3)
  - DELIRIUM [None]
  - EPILEPSY [None]
  - RESPIRATORY FAILURE [None]
